FAERS Safety Report 4788625-5 (Version None)
Quarter: 2005Q4

REPORT INFORMATION
  Report Type: 
  Country: None (occurrence: None)
  Receive Date: 20051005
  Receipt Date: 20051003
  Transmission Date: 20060501
  Serious: Yes (Other)
  Sender: FDA-Public Use
  Company Number: US-GLAXOSMITHKLINE-A0576701A

PATIENT
  Age: 70 Year
  Sex: Male

DRUGS (3)
  1. PAXIL [Suspect]
     Indication: DEPRESSION
     Dosage: 40MG PER DAY
     Route: 048
  2. PAXIL CR [Suspect]
     Route: 048
  3. LITHIUM [Concomitant]

REACTIONS (3)
  - ANGER [None]
  - MANIA [None]
  - MOOD SWINGS [None]
